FAERS Safety Report 5619136-2 (Version None)
Quarter: 2008Q1

REPORT INFORMATION
  Report Type: 
  Country: None (occurrence: None)
  Receive Date: 20080205
  Receipt Date: 20080124
  Transmission Date: 20080703
  Serious: Yes (Hospitalization)
  Sender: FDA-Public Use
  Company Number: 2008-171164-NL

PATIENT
  Age: 71 Year
  Sex: Male

DRUGS (8)
  1. DEXAMETHASONE TAB [Suspect]
     Indication: MULTIPLE MYELOMA
     Dosage: 40 MG DAILY, DAYS 1-4 OF DISCHARGE
  2. DEXAMETHASONE TAB [Suspect]
     Indication: MULTIPLE MYELOMA
     Dosage: 40 MG DAILY, 9-12 OF DISCHARGE
  3. DEXAMETHASONE TAB [Suspect]
     Indication: MULTIPLE MYELOMA
     Dosage: 40 MG DAILY, 17-20 OF DISCHARGE
  4. DEXAMETHASONE TAB [Suspect]
     Indication: MULTIPLE MYELOMA
     Dosage: PULSE. ON SECOND DISCHARGE
  5. THALIDOMIDE [Suspect]
     Indication: MULTIPLE MYELOMA
     Dosage: 100 MG DAILY, NIGHTLY, SINCE DISCHARGE FROM HOSPITAL
  6. DARBEPOETIN ALPHA [Concomitant]
  7. ZOLEDRONIC ACID [Concomitant]
  8. WARFARIN SODIUM [Concomitant]

REACTIONS (3)
  - BLOOD LACTATE DEHYDROGENASE INCREASED [None]
  - HAEMODIALYSIS [None]
  - RENAL FAILURE ACUTE [None]
